FAERS Safety Report 20303242 (Version 1)
Quarter: 2022Q1

REPORT INFORMATION
  Report Type: Spontaneous
  Country: US (occurrence: US)
  Receive Date: 20220106
  Receipt Date: 20220106
  Transmission Date: 20220423
  Serious: No
  Sender: FDA-Public Use
  Company Number: US-BIOVITRUM-2022US00100

PATIENT
  Sex: Female
  Weight: 5 kg

DRUGS (5)
  1. SYNAGIS [Suspect]
     Active Substance: PALIVIZUMAB
     Indication: Fallot^s tetralogy
     Route: 030
     Dates: start: 202109
  2. ASPIRIN [Concomitant]
     Active Substance: ASPIRIN
  3. VITAMIN D [Concomitant]
     Active Substance: VITAMIN D NOS
     Dosage: 1 ML PER G TUBE
  4. EPINEPHRINE [Concomitant]
     Active Substance: EPINEPHRINE
  5. SYNAGIS [Suspect]
     Active Substance: PALIVIZUMAB
     Indication: DiGeorge^s syndrome

REACTIONS (2)
  - Cardiac disorder [Unknown]
  - Inappropriate schedule of product administration [Unknown]
